FAERS Safety Report 5083665-3 (Version None)
Quarter: 2006Q3

REPORT INFORMATION
  Report Type: 
  Country: None (occurrence: None)
  Receive Date: 20060816
  Receipt Date: 20060803
  Transmission Date: 20061208
  Serious: Yes (Death, Hospitalization)
  Sender: FDA-Public Use
  Company Number: 2006BH012222

PATIENT
  Age: 54 Year
  Sex: Female

DRUGS (20)
  1. DIANEAL [Suspect]
     Indication: RENAL FAILURE CHRONIC
     Dosage: 10 L;EVERY DAY;IP
     Route: 033
     Dates: start: 20010401
  2. CLONIDINE [Concomitant]
  3. EPOGEN [Concomitant]
  4. NIACIN [Concomitant]
  5. CALCIUM CARBONATE [Concomitant]
  6. POTASSIUM CHLORIDE [Concomitant]
  7. POTASSIUM PHOSPHATES [Concomitant]
  8. DIATX [Concomitant]
  9. DEPAKOTE [Concomitant]
  10. GLUCOSAMINE W/CHONDROITIN [Concomitant]
  11. LOPID [Concomitant]
  12. NORVASC [Concomitant]
  13. METOPROLOL TARTRATE [Concomitant]
  14. LISINOPRIL [Concomitant]
  15. PACERONE [Concomitant]
  16. ASPIRIN [Concomitant]
  17. MEGACE [Concomitant]
  18. PROVENTIL [Concomitant]
  19. HOME HEPARIN [Concomitant]
  20. BACTROBAN [Concomitant]

REACTIONS (6)
  - ANGIOPATHY [None]
  - CEREBROVASCULAR ACCIDENT [None]
  - HEADACHE [None]
  - HYPERTENSION [None]
  - NAUSEA [None]
  - VOMITING [None]
